FAERS Safety Report 9026967 (Version 1)
Quarter: 2013Q1

REPORT INFORMATION
  Report Type: Spontaneous
  Country: FR (occurrence: FR)
  Receive Date: 20130123
  Receipt Date: 20130123
  Transmission Date: 20140127
  Serious: Yes (Hospitalization, Other)
  Sender: FDA-Public Use
  Company Number: FR-PFIZER INC-2013014091

PATIENT
  Age: 88 Year
  Sex: Female

DRUGS (3)
  1. ALDALIX [Suspect]
     Dosage: 1 DF (20 MG/50 MG), 1X/DAY
     Route: 048
     Dates: start: 2012, end: 20121023
  2. EFFEXOR LP [Interacting]
     Dosage: 75 MG, 1X/DAY
     Route: 048
     Dates: start: 2012
  3. INEXIUM [Interacting]
     Dosage: 20 MG, 1X/DAY
     Route: 048
     Dates: start: 2012

REACTIONS (4)
  - Drug interaction [Unknown]
  - Hyponatraemia [Recovered/Resolved]
  - Abdominal pain [Unknown]
  - Constipation [Unknown]
